FAERS Safety Report 8099996-9 (Version None)
Quarter: 2012Q1

REPORT INFORMATION
  Report Type: 
  Country: None (occurrence: None)
  Receive Date: 20120129
  Receipt Date: 20111127
  Transmission Date: 20120608
  Serious: No
  Sender: FDA-Public Use
  Company Number: US-ABBOTT-11P-163-0878720-00

PATIENT
  Age: 56 Year
  Sex: Female

DRUGS (6)
  1. ZOVIRAX [Concomitant]
     Indication: HERPES VIRUS INFECTION
  2. HUMIRA [Suspect]
     Indication: CROHN'S DISEASE
  3. ZOLOFT [Concomitant]
     Indication: DEPRESSION
     Dosage: 50 MG, DAILY
  4. LIALDA [Concomitant]
     Indication: CROHN'S DISEASE
  5. LORAZEPAM [Concomitant]
     Indication: ANXIETY
  6. ERYTHROMYCIN [Concomitant]
     Indication: PRODUCT USED FOR UNKNOWN INDICATION
     Dosage: 3.5 OINTMENT TO BOTH EYES, 3 IN 1 DAY

REACTIONS (2)
  - RASH ERYTHEMATOUS [None]
  - RASH PRURITIC [None]
